FAERS Safety Report 15435584 (Version 1)
Quarter: 2018Q3

REPORT INFORMATION
  Report Type: Spontaneous
  Country: JP (occurrence: JP)
  Receive Date: 20180927
  Receipt Date: 20180927
  Transmission Date: 20181010
  Serious: Yes (Hospitalization)
  Sender: FDA-Public Use
  Company Number: JP-LANNETT COMPANY, INC.-JP-2018LAN001156

PATIENT

DRUGS (1)
  1. FLUPHENAZINE HYDROCHLORIDE (1MG) [Suspect]
     Active Substance: FLUPHENAZINE HYDROCHLORIDE
     Indication: SCHIZOPHRENIA
     Dosage: 50 MG, EVERY 4 WEEKS FOR 3 YEARS
     Route: 030

REACTIONS (1)
  - Rhabdomyolysis [Unknown]
